FAERS Safety Report 10901566 (Version 2)
Quarter: 2015Q2

REPORT INFORMATION
  Report Type: Report from Study
  Country: CA (occurrence: CA)
  Receive Date: 20150310
  Receipt Date: 20150505
  Transmission Date: 20150821
  Serious: Yes (Other)
  Sender: FDA-Public Use
  Company Number: CA-SA-2015SA028025

PATIENT
  Age: 45 Year
  Sex: Female

DRUGS (6)
  1. NAPROXEN. [Concomitant]
     Active Substance: NAPROXEN
     Indication: MULTIPLE SCLEROSIS
     Dosage: AS NEEDED
     Route: 048
  2. CITALOPRAM [Concomitant]
     Active Substance: CITALOPRAM HYDROBROMIDE
     Indication: MULTIPLE SCLEROSIS
     Route: 048
  3. LORAZEPAM. [Concomitant]
     Active Substance: LORAZEPAM
     Indication: SLEEP DISORDER
     Route: 048
  4. BUPROPION [Concomitant]
     Active Substance: BUPROPION
     Indication: MULTIPLE SCLEROSIS
     Route: 048
  5. AUBAGIO [Suspect]
     Active Substance: TERIFLUNOMIDE
     Indication: MULTIPLE SCLEROSIS
     Route: 048
     Dates: start: 20150227
  6. ERGOCALCIFEROL. [Concomitant]
     Active Substance: ERGOCALCIFEROL
     Indication: MULTIPLE SCLEROSIS
     Route: 048

REACTIONS (2)
  - Fall [Unknown]
  - Foot fracture [Recovered/Resolved]

NARRATIVE: CASE EVENT DATE: 20150302
